FAERS Safety Report 7589932-3 (Version None)
Quarter: 2011Q3

REPORT INFORMATION
  Report Type: 
  Country: None (occurrence: None)
  Receive Date: 20110705
  Receipt Date: 20110617
  Transmission Date: 20111222
  Serious: No
  Sender: FDA-Public Use
  Company Number: US-B.I. PHARMACEUTICALS,INC./RIDGEFIELD-2011-BP-16040BP

PATIENT
  Sex: Male

DRUGS (2)
  1. PRADAXA [Suspect]
  2. PLAVIX [Concomitant]
     Indication: CEREBROVASCULAR ACCIDENT

REACTIONS (2)
  - WHITE BLOOD CELL COUNT DECREASED [None]
  - URINARY BLADDER HAEMORRHAGE [None]
